FAERS Safety Report 9661944 (Version 2)
Quarter: 2013Q4

REPORT INFORMATION
  Report Type: Spontaneous
  Country: US (occurrence: US)
  Receive Date: 20131031
  Receipt Date: 20131031
  Transmission Date: 20140711
  Serious: No
  Sender: FDA-Public Use
  Company Number: US-PURDUE-USA-2011-0064756

PATIENT
  Age: 49 Year
  Sex: Male
  Weight: 86.17 kg

DRUGS (5)
  1. OXYCONTIN (NDA 22-272) [Suspect]
     Indication: BACK PAIN
     Dosage: 80MG, 2 TABLETS, TID
     Route: 048
     Dates: start: 201012, end: 20110214
  2. PERCOCET                           /00867901/ [Concomitant]
     Indication: PRODUCT USED FOR UNKNOWN INDICATION
  3. XANAX [Concomitant]
     Indication: PRODUCT USED FOR UNKNOWN INDICATION
  4. ALBUTEROL                          /00139501/ [Concomitant]
     Indication: PRODUCT USED FOR UNKNOWN INDICATION
  5. ^LUNICTA^ [Concomitant]

REACTIONS (4)
  - Medication residue present [Recovered/Resolved]
  - Drug effect decreased [Recovered/Resolved]
  - Constipation [Recovered/Resolved]
  - Drug effect delayed [Recovered/Resolved]
